FAERS Safety Report 15205926 (Version 1)
Quarter: 2018Q3

REPORT INFORMATION
  Report Type: Spontaneous
  Country: US (occurrence: US)
  Receive Date: 20180727
  Receipt Date: 20180727
  Transmission Date: 20181010
  Serious: Yes (Hospitalization)
  Sender: FDA-Public Use
  Company Number: US-ROCHE-2158911

PATIENT
  Age: 4 Year
  Sex: Male

DRUGS (6)
  1. CREON [Concomitant]
     Active Substance: PANCRELIPASE AMYLASE\PANCRELIPASE LIPASE\PANCRELIPASE PROTEASE
     Dosage: ONGOING: UNK
     Route: 048
     Dates: start: 20180216
  2. PULMICORT TURBUHALER [Concomitant]
     Active Substance: BUDESONIDE
     Dosage: ONGOING: UNK
     Route: 055
     Dates: start: 20180216
  3. CYPROHEPTADINE. [Concomitant]
     Active Substance: CYPROHEPTADINE
     Dosage: ONGOING: UNK
     Route: 048
     Dates: start: 20180216
  4. HYDROCORTISONE. [Concomitant]
     Active Substance: HYDROCORTISONE
     Dosage: ONGOING: UNK , ROUTE EXTERNAL
     Route: 065
     Dates: start: 20180216
  5. HYDROXYZINE HCL [Concomitant]
     Active Substance: HYDROXYZINE HYDROCHLORIDE
     Dosage: ONGOING: UNK
     Route: 048
     Dates: start: 20180425
  6. PULMOZYME [Suspect]
     Active Substance: DORNASE ALFA
     Indication: CYSTIC FIBROSIS
     Dosage: 1 MG/ML, DAILY ONGOING
     Route: 055
     Dates: start: 20180126

REACTIONS (1)
  - Underweight [Recovered/Resolved]

NARRATIVE: CASE EVENT DATE: 20180620
